FAERS Safety Report 9136704 (Version 1)
Quarter: 2013Q1

REPORT INFORMATION
  Report Type: Spontaneous
  Country: US (occurrence: US)
  Receive Date: 20130304
  Receipt Date: 20130304
  Transmission Date: 20140127
  Serious: No
  Sender: FDA-Public Use
  Company Number: US-ABBOTT-12P-163-0914620-00

PATIENT
  Sex: Male
  Weight: 97.61 kg

DRUGS (10)
  1. ANDROGEL 1% [Suspect]
     Indication: BLOOD TESTOSTERONE DECREASED
     Route: 061
     Dates: start: 2010
  2. ANDROGEL 1% [Suspect]
     Route: 061
     Dates: start: 201203
  3. ANDROGEL 1% [Suspect]
     Route: 061
  4. ANDROGEL 1.62% [Suspect]
     Indication: BLOOD TESTOSTERONE DECREASED
     Dates: end: 201203
  5. ASPIRIN [Concomitant]
     Indication: CARDIOVASCULAR EVENT PROPHYLAXIS
  6. ATENOLOL [Concomitant]
     Indication: BLOOD PRESSURE
  7. LIPITOR [Concomitant]
     Indication: BLOOD CHOLESTEROL
  8. CLONAZEPAM [Concomitant]
     Indication: ANXIETY
  9. RANITIDINE [Concomitant]
     Indication: GASTROOESOPHAGEAL REFLUX DISEASE
  10. VITAMINS [Concomitant]
     Indication: PRODUCT USED FOR UNKNOWN INDICATION

REACTIONS (3)
  - Drug dispensing error [None]
  - Incorrect drug dosage form administered [None]
  - Blood testosterone increased [Unknown]
